FAERS Safety Report 4572441-3 (Version None)
Quarter: 2005Q1

REPORT INFORMATION
  Report Type: 
  Country: None (occurrence: None)
  Receive Date: 20050207
  Receipt Date: 20050127
  Transmission Date: 20050727
  Serious: Yes (Other)
  Sender: FDA-Public Use
  Company Number: PL-GLAXOSMITHKLINE-B0369926A

PATIENT
  Age: 52 Year
  Sex: Female
  Weight: 70 kg

DRUGS (5)
  1. FLIXOTIDE [Suspect]
     Indication: ASTHMA
     Dosage: 500MCG TWICE PER DAY
     Route: 055
     Dates: start: 20040724, end: 20040728
  2. CETIRIZINE HCL [Concomitant]
     Indication: PRURITUS
     Dosage: 10MG PER DAY
     Route: 048
     Dates: start: 20020101
  3. BUDESONIDE [Concomitant]
     Indication: ASTHMA
     Dosage: 400UG TWICE PER DAY
     Route: 055
     Dates: start: 20040728
  4. ALBUTEROL [Concomitant]
     Indication: ASTHMA
     Route: 055
     Dates: start: 20020101
  5. AMLODIPINE [Concomitant]
     Indication: HYPERTENSION

REACTIONS (9)
  - COUGH [None]
  - DRUG HYPERSENSITIVITY [None]
  - DYSPHAGIA [None]
  - DYSPHONIA [None]
  - DYSPNOEA [None]
  - ORAL PRURITUS [None]
  - PHARYNGEAL OEDEMA [None]
  - PRURITUS GENERALISED [None]
  - STRIDOR [None]
